FAERS Safety Report 18689885 (Version 1)
Quarter: 2020Q4

REPORT INFORMATION
  Report Type: Spontaneous
  Country: US (occurrence: US)
  Receive Date: 20201231
  Receipt Date: 20201231
  Transmission Date: 20210114
  Serious: No
  Sender: FDA-Public Use
  Company Number: US-ACELRX PHARMACEUTICALS, INC-ACEL20201048

PATIENT
  Sex: Female

DRUGS (6)
  1. FENTANYL. [Concomitant]
     Active Substance: FENTANYL
     Dosage: 50 MCG
     Route: 042
     Dates: start: 20201209
  2. FENTANYL. [Concomitant]
     Active Substance: FENTANYL
     Dosage: 50 MCG
     Route: 042
     Dates: start: 20201209
  3. KETAMINE [Concomitant]
     Active Substance: KETAMINE
     Dosage: LOW DOSE
     Route: 042
     Dates: start: 20201209
  4. ANESTHETIC [Concomitant]
     Active Substance: BENZOCAINE\LIDOCAINE HYDROCHLORIDE
  5. DSUVIA [Suspect]
     Active Substance: SUFENTANIL
     Indication: PAIN PROPHYLAXIS
     Dosage: ADMINISTERED HALF HOUR BEFORE PATIENT WAS TO WAKE UP
     Route: 060
     Dates: start: 20201209, end: 20201209
  6. GABAPENTIN. [Concomitant]
     Active Substance: GABAPENTIN
     Dosage: 300 MG
     Dates: start: 20201209

REACTIONS (6)
  - Procedural pain [Unknown]
  - Sleep apnoea syndrome [Unknown]
  - Reversal of opiate activity [None]
  - Hypopnoea [Unknown]
  - Oxygen saturation decreased [Unknown]
  - Somnolence [Unknown]

NARRATIVE: CASE EVENT DATE: 20201209
